FAERS Safety Report 14963849 (Version 1)
Quarter: 2018Q2

REPORT INFORMATION
  Report Type: Spontaneous
  Country: US (occurrence: US)
  Receive Date: 20180601
  Receipt Date: 20180601
  Transmission Date: 20180711
  Serious: No
  Sender: FDA-Public Use
  Company Number: US-SA-2017SA199555

PATIENT
  Age: 4 Month
  Sex: Female

DRUGS (1)
  1. LUMIZYME [Suspect]
     Active Substance: ALGLUCOSIDASE ALFA
     Dosage: 40 MG/KG,QOW
     Route: 041
     Dates: start: 20170725

REACTIONS (1)
  - Antibody test [Unknown]

NARRATIVE: CASE EVENT DATE: 20170926
